FAERS Safety Report 7814041-5 (Version None)
Quarter: 2011Q4

REPORT INFORMATION
  Report Type: 
  Country: None (occurrence: None)
  Receive Date: 20111014
  Receipt Date: 20111006
  Transmission Date: 20120403
  Serious: Yes (Hospitalization)
  Sender: FDA-Public Use
  Company Number: US-JNJFOC-20111003954

PATIENT
  Sex: Female

DRUGS (7)
  1. FENTANYL-100 [Suspect]
     Route: 062
  2. VERAPAMIL [Concomitant]
     Indication: MIGRAINE
     Route: 048
  3. FENTANYL-100 [Suspect]
     Indication: SURGERY
     Route: 062
     Dates: end: 20110917
  4. FENTANYL-100 [Suspect]
     Indication: SURGERY
     Dosage: NDC: 0781-7420-55
     Route: 062
     Dates: start: 20110918, end: 20111005
  5. FENTANYL-100 [Suspect]
     Route: 062
  6. FENTANYL-100 [Suspect]
     Route: 062
  7. ASPIRIN [Concomitant]
     Indication: ANTICOAGULANT THERAPY
     Route: 048

REACTIONS (5)
  - THERAPEUTIC RESPONSE DECREASED [None]
  - THINKING ABNORMAL [None]
  - WITHDRAWAL SYNDROME [None]
  - FEELING ABNORMAL [None]
  - PRODUCT QUALITY ISSUE [None]
